FAERS Safety Report 6683254-0 (Version None)
Quarter: 2010Q2

REPORT INFORMATION
  Report Type: 
  Country: None (occurrence: None)
  Receive Date: 20100415
  Receipt Date: 20100407
  Transmission Date: 20101027
  Serious: Yes (Other)
  Sender: FDA-Public Use
  Company Number: CA-JNJFOC-20100402076

PATIENT

DRUGS (2)
  1. INFLIXIMAB [Suspect]
     Indication: DRUG USE FOR UNKNOWN INDICATION
     Route: 042
  2. INFLIXIMAB [Suspect]
     Route: 042

REACTIONS (1)
  - NERVOUS SYSTEM DISORDER [None]
